FAERS Safety Report 17154981 (Version 1)
Quarter: 2019Q4

REPORT INFORMATION
  Report Type: Spontaneous
  Country: FR (occurrence: FR)
  Receive Date: 20191214
  Receipt Date: 20191214
  Transmission Date: 20200122
  Serious: Yes (Life-Threatening)
  Sender: FDA-Public Use
  Company Number: FR-MYLANLABS-2019M1123387

PATIENT
  Age: 72 Year
  Sex: Male
  Weight: 98 kg

DRUGS (9)
  1. SUXAMETHONIUM                      /00057702/ [Suspect]
     Active Substance: SUCCINYLCHOLINE
     Indication: ANAESTHESIA
     Dosage: 100 MILLIGRAM, TOTAL
     Route: 041
     Dates: start: 20190725, end: 20190725
  2. METHYLPREDNISOLONE MYLAN [Suspect]
     Active Substance: METHYLPREDNISOLONE
     Indication: PROPHYLAXIS OF NAUSEA AND VOMITING
     Dosage: 80 MILLIGRAM, TOTAL
     Route: 041
     Dates: start: 20190725, end: 20190725
  3. PROPOFOL LIPURO [Suspect]
     Active Substance: PROPOFOL
     Indication: ANAESTHESIA
     Dosage: 200 MILLIGRAM, QD
     Route: 041
     Dates: start: 20190725, end: 20190725
  4. REMIFENTANIL MYLAN [Suspect]
     Active Substance: REMIFENTANIL
     Indication: ANAESTHESIA
     Dosage: 10 MICROGRAM, TOTAL
     Route: 041
     Dates: start: 20190725, end: 20190725
  5. EPHEDRINE AGUETTANT [Suspect]
     Active Substance: EPHEDRINE
     Indication: PROPHYLAXIS
     Dosage: 30 MILLIGRAM, QD
     Route: 041
     Dates: start: 20190725, end: 20190725
  6. LERCAPRESS                         /07931001/ [Concomitant]
     Active Substance: ENALAPRIL MALEATE\LERCANIDIPINE HYDROCHLORIDE
     Dosage: UNK
  7. RABEPRAZOLE [Concomitant]
     Active Substance: RABEPRAZOLE
     Dosage: UNK
  8. DROPERIDOL AGUETTANT [Suspect]
     Active Substance: DROPERIDOL
     Indication: PROPHYLAXIS OF NAUSEA AND VOMITING
     Dosage: 1.25 MILLIGRAM, TOTAL
     Route: 041
     Dates: start: 20190725, end: 20190725
  9. SPIRIVA [Concomitant]
     Active Substance: TIOTROPIUM BROMIDE MONOHYDRATE
     Dosage: UNK

REACTIONS (1)
  - Anaphylactic shock [Recovered/Resolved]

NARRATIVE: CASE EVENT DATE: 20190725
